FAERS Safety Report 8973757 (Version 1)
Quarter: 2012Q4

REPORT INFORMATION
  Report Type: 
  Country: SI (occurrence: SI)
  Receive Date: 20121219
  Receipt Date: 20121219
  Transmission Date: 20130627
  Serious: Yes (Hospitalization, Other)
  Sender: FDA-Public Use
  Company Number: SI-JNJFOC-20121203738

PATIENT
  Age: 24 Year
  Sex: Female

DRUGS (12)
  1. RISPERDAL CONSTA [Suspect]
     Indication: BIPOLAR DISORDER
     Route: 030
  2. RISPERDAL CONSTA [Suspect]
     Indication: BIPOLAR DISORDER
     Route: 030
  3. RISPERIDONE [Suspect]
     Indication: BIPOLAR DISORDER
     Route: 065
  4. RISPERIDONE [Suspect]
     Indication: BIPOLAR DISORDER
     Route: 065
  5. RISPERIDONE [Suspect]
     Indication: BIPOLAR DISORDER
     Route: 065
  6. HALOPERIDOL [Concomitant]
     Route: 048
  7. SODIUM VALPROATE [Concomitant]
     Route: 048
  8. SODIUM VALPROATE [Concomitant]
     Route: 048
  9. SODIUM VALPROATE [Concomitant]
     Route: 048
  10. LORAZEPAM [Concomitant]
     Route: 048
  11. NITRAZEPAM [Concomitant]
     Route: 048
  12. BIPERIDEN [Concomitant]
     Route: 048

REACTIONS (4)
  - Oculogyric crisis [Recovered/Resolved]
  - Insomnia [Unknown]
  - Logorrhoea [Recovering/Resolving]
  - Euphoric mood [Recovering/Resolving]
